FAERS Safety Report 7726961-0 (Version None)
Quarter: 2011Q3

REPORT INFORMATION
  Report Type: 
  Country: None (occurrence: None)
  Receive Date: 20110902
  Receipt Date: 20110830
  Transmission Date: 20111222
  Serious: Yes (Other)
  Sender: FDA-Public Use
  Company Number: US-PFIZER INC-2011202219

PATIENT
  Sex: Female

DRUGS (2)
  1. DETROL LA [Suspect]
     Indication: BLADDER DISORDER
  2. DETROL LA [Suspect]
     Indication: DYSURIA
     Dosage: UNK

REACTIONS (3)
  - DRY EYE [None]
  - LIP DRY [None]
  - DYSPNOEA [None]
